FAERS Safety Report 26045600 (Version 1)
Quarter: 2025Q4

REPORT INFORMATION
  Report Type: Spontaneous
  Country: EU (occurrence: EU)
  Receive Date: 20251114
  Receipt Date: 20251114
  Transmission Date: 20260117
  Serious: Yes (Hospitalization)
  Sender: TEVA
  Company Number: None

PATIENT
  Age: 77 Year
  Sex: Female
  Weight: 70 kg

DRUGS (32)
  1. CAPECITABINE [Suspect]
     Active Substance: CAPECITABINE
     Indication: HER2 positive breast cancer
     Dosage: FROM DAY 1 TO DAY 14
     Route: 048
     Dates: start: 20200911, end: 20210301
  2. CAPECITABINE [Suspect]
     Active Substance: CAPECITABINE
     Indication: HER2 positive breast cancer
     Dosage: FROM DAY 1 TO DAY 14, 2000 MILLIGRAM, Q2WK
     Route: 048
     Dates: start: 20200702, end: 20200723
  3. CAPECITABINE [Suspect]
     Active Substance: CAPECITABINE
     Indication: HER2 positive breast cancer
     Dosage: 2000.000MG QD
     Route: 048
     Dates: start: 20210301
  4. CAPECITABINE [Suspect]
     Active Substance: CAPECITABINE
     Indication: HER2 positive breast cancer
     Dosage: 3000.000MG QD
     Route: 048
     Dates: start: 20200911, end: 20210301
  5. CAPECITABINE [Suspect]
     Active Substance: CAPECITABINE
     Indication: HER2 positive breast cancer
     Dosage: FROM DAY 1 TO DAY 14
     Route: 048
     Dates: start: 20200723, end: 20200810
  6. CAPECITABINE [Suspect]
     Active Substance: CAPECITABINE
     Indication: HER2 positive breast cancer
     Route: 048
     Dates: start: 20200723, end: 20200810
  7. CAPECITABINE [Suspect]
     Active Substance: CAPECITABINE
     Indication: HER2 positive breast cancer
     Dosage: FROM DAY 1 TO DAY 14
     Route: 048
     Dates: start: 20210301, end: 20210729
  8. CAPECITABINE [Suspect]
     Active Substance: CAPECITABINE
     Indication: HER2 positive breast cancer
     Dosage: 2000 MILLIGRAM, Q2WK
     Route: 048
     Dates: start: 20200702, end: 20200723
  9. MEDROL [Concomitant]
     Active Substance: METHYLPREDNISOLONE
     Indication: Product used for unknown indication
     Route: 065
  10. LEVACECARNINE HYDROCHLORIDE [Concomitant]
     Active Substance: LEVACECARNINE HYDROCHLORIDE
     Indication: Product used for unknown indication
     Route: 065
  11. LETROZOLE [Suspect]
     Active Substance: LETROZOLE
     Indication: HER2 positive breast cancer
     Route: 048
     Dates: start: 20191030, end: 20200302
  12. GABAPENTIN [Concomitant]
     Active Substance: GABAPENTIN
     Indication: Product used for unknown indication
     Dosage: UNK
     Route: 065
     Dates: start: 20190725, end: 20200420
  13. CARVEDILOL [Concomitant]
     Active Substance: CARVEDILOL
     Indication: Product used for unknown indication
     Route: 065
     Dates: start: 20200603
  14. KADCYLA [Suspect]
     Active Substance: ADO-TRASTUZUMAB EMTANSINE
     Indication: HER2 positive breast cancer
     Dosage: 252 MILLIGRAM/KILOGRAM, Q3WK
     Route: 042
     Dates: start: 20200310, end: 20200702
  15. KADCYLA [Suspect]
     Active Substance: ADO-TRASTUZUMAB EMTANSINE
     Indication: HER2 positive breast cancer
     Dosage: 252 MG/KG, TIW
     Route: 042
     Dates: start: 20200310, end: 20200331
  16. Levopraid [Concomitant]
     Indication: Product used for unknown indication
     Route: 065
  17. LOPERAMIDE HYDROCHLORIDE [Concomitant]
     Active Substance: LOPERAMIDE HYDROCHLORIDE
     Indication: Product used for unknown indication
     Dosage: UNK
     Route: 065
  18. ONTRUZANT [Suspect]
     Active Substance: TRASTUZUMAB-DTTB
     Indication: HER2 positive breast cancer
     Dosage: 6 MG/KG, TIW
     Route: 042
     Dates: start: 20200512, end: 20210729
  19. NEURONTIN [Concomitant]
     Active Substance: GABAPENTIN
     Indication: Neuropathy peripheral
     Route: 065
     Dates: start: 20190725, end: 20200420
  20. TAZAROTENE [Concomitant]
     Active Substance: TAZAROTENE
     Indication: Product used for unknown indication
     Route: 065
     Dates: start: 20191205, end: 20200420
  21. Normast [Concomitant]
     Indication: Product used for unknown indication
     Route: 065
  22. CITALOPRAM [Concomitant]
     Active Substance: CITALOPRAM
     Indication: Product used for unknown indication
     Route: 065
     Dates: start: 20200715
  23. AROMASIN [Suspect]
     Active Substance: EXEMESTANE
     Indication: Product used for unknown indication
     Dosage: 25.000MG QD
     Route: 048
     Dates: start: 20200512, end: 20200702
  24. HERCEPTIN [Suspect]
     Active Substance: TRASTUZUMAB
     Indication: HER2 positive breast cancer
     Dosage: 6 MG/M2, TIW (MOST RECENT DOSE WAS RECEIVED ON 2020-07-02)
     Route: 042
     Dates: start: 20200702
  25. HERCEPTIN [Suspect]
     Active Substance: TRASTUZUMAB
     Indication: HER2 positive breast cancer
     Dosage: 6 MG/M2, TIW (MOST RECENT DOSE WAS RECEIVED ON 2020-07-02)
     Route: 042
     Dates: start: 20190530, end: 20200214
  26. PREGABALIN [Concomitant]
     Active Substance: PREGABALIN
     Indication: Product used for unknown indication
     Route: 065
  27. LEVOTHYROXINE SODIUM [Concomitant]
     Active Substance: LEVOTHYROXINE SODIUM
     Indication: Product used for unknown indication
     Route: 065
  28. ACETAMINOPHEN\OXYCODONE HYDROCHLORIDE [Concomitant]
     Active Substance: ACETAMINOPHEN\OXYCODONE HYDROCHLORIDE
     Indication: Product used for unknown indication
     Route: 065
  29. LACTULOSE [Concomitant]
     Active Substance: LACTULOSE
     Indication: Product used for unknown indication
     Route: 065
  30. DIETARY SUPPLEMENT\HERBALS\MILK THISTLE [Concomitant]
     Active Substance: MILK THISTLE
     Indication: Product used for unknown indication
     Route: 065
  31. PACLITAXEL [Suspect]
     Active Substance: PACLITAXEL
     Indication: HER2 positive breast cancer
     Dosage: 80 MG/M2 (MOST RECENT DOSE WAS RECEIVED ON 2019-09-06)
     Route: 042
     Dates: start: 20190509, end: 20190906
  32. PERJETA [Suspect]
     Active Substance: PERTUZUMAB
     Indication: HER2 positive breast cancer
     Dosage: 420 MG, TIW (MOST RECENT DOSE WAS RECEIVED ON 2020-02-14)
     Route: 042
     Dates: start: 20190530, end: 20200214

REACTIONS (2)
  - Diarrhoea [Recovered/Resolved]
  - Hypertransaminasaemia [Recovered/Resolved]

NARRATIVE: CASE EVENT DATE: 20200420
